FAERS Safety Report 8347850-7 (Version None)
Quarter: 2012Q2

REPORT INFORMATION
  Report Type: 
  Country: None (occurrence: None)
  Receive Date: 20120509
  Receipt Date: 20120504
  Transmission Date: 20120825
  Serious: Yes (Hospitalization)
  Sender: FDA-Public Use
  Company Number: NL-GLAXOSMITHKLINE-B0800351A

PATIENT
  Sex: Female

DRUGS (7)
  1. CARDIAC MEDICATION [Concomitant]
  2. LAPATINIB [Suspect]
     Indication: BREAST CANCER
     Dosage: 238000MG CUMULATIVE DOSE
     Route: 048
     Dates: start: 20100914
  3. GEMCITABINE [Suspect]
     Indication: BREAST CANCER
     Dosage: 41700MG CUMULATIVE DOSE
     Route: 042
     Dates: start: 20100914
  4. ACTIQ [Concomitant]
     Dosage: 400MG PER DAY
     Dates: start: 20080101
  5. ANTI-EMETICS [Concomitant]
  6. FENTANYL CITRATE [Concomitant]
     Dosage: 150MG PER DAY
     Dates: start: 20080101
  7. LYRICA [Concomitant]
     Dosage: 300MG PER DAY
     Dates: start: 20070101

REACTIONS (2)
  - ABDOMINAL PAIN LOWER [None]
  - VOMITING [None]
